FAERS Safety Report 10056273 (Version 5)
Quarter: 2016Q4

REPORT INFORMATION
  Report Type: Spontaneous
  Country: JP (occurrence: JP)
  Receive Date: 20140403
  Receipt Date: 20161207
  Transmission Date: 20170206
  Serious: Yes (Hospitalization)
  Sender: FDA-Public Use
  Company Number: JP-MALLINCKRODT-T201401577

PATIENT
  Age: 56 Year
  Sex: Female

DRUGS (43)
  1. METHADONE [Suspect]
     Active Substance: METHADONE HYDROCHLORIDE
     Dosage: 30 MG, (60 MG DAILY DOSE)
     Route: 048
     Dates: start: 20140619, end: 20140814
  2. OXINORM [Concomitant]
     Active Substance: OXYCODONE HYDROCHLORIDE
     Dosage: 80 MG
     Route: 048
     Dates: start: 20140114, end: 20140415
  3. SEROQUEL [Concomitant]
     Active Substance: QUETIAPINE FUMARATE
     Dosage: 25 MG, UNK
     Route: 048
  4. KETALAR [Concomitant]
     Active Substance: KETAMINE HYDROCHLORIDE
     Indication: ANALGESIC THERAPY
     Dosage: 100 MG
     Route: 048
     Dates: start: 20140917, end: 20140923
  5. KETALAR [Concomitant]
     Active Substance: KETAMINE HYDROCHLORIDE
     Dosage: 200 MG
     Route: 048
     Dates: start: 20140924, end: 20141008
  6. GABALON [Concomitant]
     Active Substance: BACLOFEN
     Indication: ANALGESIC THERAPY
     Dosage: 15 MG, UNK
     Route: 048
     Dates: end: 20140716
  7. LANDSEN [Concomitant]
     Active Substance: CLONAZEPAM
     Dosage: 6 MG
     Route: 048
     Dates: start: 20140828
  8. OXYCONTIN [Concomitant]
     Active Substance: OXYCODONE HYDROCHLORIDE
  9. CYMBALTA [Concomitant]
     Active Substance: DULOXETINE HYDROCHLORIDE
     Dosage: 40 MG
     Route: 048
     Dates: start: 20140710, end: 20140909
  10. METHADONE [Suspect]
     Active Substance: METHADONE HYDROCHLORIDE
     Dosage: 10 MG, (20 MG DAILY DOSE)
     Route: 048
     Dates: start: 20140121, end: 20140129
  11. METHADONE [Suspect]
     Active Substance: METHADONE HYDROCHLORIDE
     Dosage: 15 MG, (30 MG DAILY DOSE)
     Route: 048
     Dates: start: 20140130, end: 20140204
  12. METHADONE [Suspect]
     Active Substance: METHADONE HYDROCHLORIDE
     Dosage: 25 MG, (50 MG DAILY DOSE)
     Route: 048
     Dates: start: 20140609, end: 20140618
  13. FENTANYL. [Concomitant]
     Active Substance: FENTANYL
     Dosage: 12.6 MG/3 DAYS
     Route: 062
  14. MYSLEE [Concomitant]
     Active Substance: ZOLPIDEM TARTRATE
     Dosage: 10 MG, UNK
     Route: 048
  15. GABALON [Concomitant]
     Active Substance: BACLOFEN
     Dosage: 5 MG
     Route: 048
     Dates: start: 20140718
  16. OXINORM [Concomitant]
     Active Substance: OXYCODONE HYDROCHLORIDE
     Dosage: 160 MG
     Route: 048
     Dates: start: 20140807
  17. ROCEPHIN [Concomitant]
     Active Substance: CEFTRIAXONE SODIUM
     Dosage: 0.5 G, UNK
     Route: 051
     Dates: start: 20140121, end: 20140121
  18. GASTER [Concomitant]
     Active Substance: FAMOTIDINE
     Dosage: 40 MG, UNK
     Route: 048
     Dates: end: 20140820
  19. CELECOX [Concomitant]
     Active Substance: CELECOXIB
     Indication: ANALGESIC THERAPY
     Dosage: 200 MG
     Route: 048
  20. BRUFEN [Concomitant]
     Active Substance: IBUPROFEN
     Indication: ANALGESIC THERAPY
     Dosage: 600 MG
     Route: 048
     Dates: start: 20140905
  21. METHADONE [Suspect]
     Active Substance: METHADONE HYDROCHLORIDE
     Indication: CANCER PAIN
     Dosage: 5 MG, (15 MG DAILY DOSE)
     Route: 048
     Dates: start: 20140114, end: 20140120
  22. METHADONE [Suspect]
     Active Substance: METHADONE HYDROCHLORIDE
     Dosage: 20 MG, (40 MG DAILY DOSE)
     Route: 048
     Dates: start: 20140205, end: 20140608
  23. METHADONE [Suspect]
     Active Substance: METHADONE HYDROCHLORIDE
     Dosage: 30 MG, (60 MG DAILY DOSE)
     Route: 048
     Dates: start: 20140822
  24. MAGMITT [Concomitant]
     Active Substance: MAGNESIUM OXIDE
     Dosage: 1980 MG, UNK
     Route: 048
  25. FERROMIA [Concomitant]
     Active Substance: FERROUS CITRATE
     Dosage: 100 MG, UNK
     Route: 048
     Dates: end: 20140214
  26. CYMBALTA [Concomitant]
     Active Substance: DULOXETINE HYDROCHLORIDE
     Indication: ANALGESIC THERAPY
     Dosage: 20 MG
     Route: 048
     Dates: start: 20140704, end: 20140709
  27. OXINORM [Concomitant]
     Active Substance: OXYCODONE HYDROCHLORIDE
     Dosage: 120 MG
     Route: 048
     Dates: start: 20140416, end: 20140806
  28. MEROPENEM. [Concomitant]
     Active Substance: MEROPENEM
     Dosage: 1 G, UNK
     Route: 051
     Dates: start: 20140118, end: 20140120
  29. CALONAL [Concomitant]
     Active Substance: ACETAMINOPHEN
     Dosage: 2400 MG, UNK
     Route: 048
  30. DEPAKENE [Concomitant]
     Active Substance: VALPROIC ACID
     Dosage: 400 MG, UNK
     Route: 048
  31. LANDSEN [Concomitant]
     Active Substance: CLONAZEPAM
     Indication: ANALGESIC THERAPY
     Dosage: 5 MG
     Route: 048
     Dates: end: 20140827
  32. ROZEREM [Concomitant]
     Active Substance: RAMELTEON
     Dosage: 8 MG
     Route: 048
     Dates: start: 20140813
  33. METHADONE [Suspect]
     Active Substance: METHADONE HYDROCHLORIDE
     Dosage: 35 MG, (70 MG DAILY DOSE)
     Route: 048
     Dates: start: 20140815, end: 20140821
  34. GABAPEN [Concomitant]
     Active Substance: GABAPENTIN
     Dosage: 600 MG, UNK
     Route: 048
     Dates: end: 20140115
  35. AMOXAN [Concomitant]
     Active Substance: AMOXAPINE
     Dosage: 25 MG, UNK
     Route: 048
  36. NAIXAN [Concomitant]
     Active Substance: NAPROXEN SODIUM
     Indication: ANALGESIC THERAPY
     Dosage: 300 MG
     Route: 048
     Dates: start: 20140606, end: 20140904
  37. YOKUKANSAN [Concomitant]
     Active Substance: HERBALS
     Indication: ANALGESIC THERAPY
     Dosage: 7.5 G
     Route: 048
     Dates: start: 20140624, end: 20140714
  38. NEXIUM [Concomitant]
     Active Substance: ESOMEPRAZOLE MAGNESIUM
     Dosage: 20 MG
     Route: 048
     Dates: start: 20140821
  39. OXINORM [Concomitant]
     Active Substance: OXYCODONE HYDROCHLORIDE
     Indication: ANALGESIC THERAPY
     Dosage: 30 MG, PRN
     Route: 048
     Dates: start: 20140113
  40. ROCEPHIN [Concomitant]
     Active Substance: CEFTRIAXONE SODIUM
     Dosage: 1 G, UNK
     Route: 051
     Dates: start: 20140121, end: 20140121
  41. CELECOX [Concomitant]
     Active Substance: CELECOXIB
     Dosage: 300 MG
     Route: 048
     Dates: start: 20140306, end: 20140605
  42. CRAVIT [Concomitant]
     Active Substance: LEVOFLOXACIN
     Dosage: 500 MG, UNK
     Route: 048
     Dates: start: 20140122, end: 20140203
  43. KETALAR [Concomitant]
     Active Substance: KETAMINE HYDROCHLORIDE
     Dosage: 300 MG
     Route: 048
     Dates: start: 20141009

REACTIONS (5)
  - Rhinorrhoea [Recovering/Resolving]
  - Hyperhidrosis [Not Recovered/Not Resolved]
  - Bacteraemia [Recovered/Resolved]
  - Insomnia [Recovering/Resolving]
  - Constipation [Not Recovered/Not Resolved]

NARRATIVE: CASE EVENT DATE: 20140117
